FAERS Safety Report 12390717 (Version 1)
Quarter: 2016Q2

REPORT INFORMATION
  Report Type: Report from Study
  Country: JO (occurrence: JO)
  Receive Date: 20160520
  Receipt Date: 20160520
  Transmission Date: 20160815
  Serious: Yes (Other)
  Sender: FDA-Public Use
  Company Number: JO-PFIZER INC-2975118

PATIENT

DRUGS (4)
  1. DEXMEDETOMIDINE HYDROCHLORIDE. [Suspect]
     Active Substance: DEXMEDETOMIDINE HYDROCHLORIDE
     Indication: POSTOPERATIVE ANALGESIA
     Dosage: 2 UG/KG, CAUDAL INJECTION
     Route: 008
  2. SEVOFLURANE. [Concomitant]
     Active Substance: SEVOFLURANE
     Indication: INDUCTION AND MAINTENANCE OF ANAESTHESIA
     Dosage: UNK
     Route: 055
  3. BUPIVACAINE. [Suspect]
     Active Substance: BUPIVACAINE
     Indication: POSTOPERATIVE ANALGESIA
     Dosage: 2 MG/KG, CAUDAL INJECTION
     Route: 008
  4. LACTATED RINGERS [Concomitant]
     Active Substance: CALCIUM CHLORIDE\POTASSIUM CHLORIDE\SODIUM CHLORIDE\SODIUM LACTATE
     Indication: FLUID REPLACEMENT
     Dosage: UNK

REACTIONS (1)
  - Urinary retention [Unknown]
